FAERS Safety Report 14879783 (Version 1)
Quarter: 2018Q2

REPORT INFORMATION
  Report Type: Spontaneous
  Country: US (occurrence: US)
  Receive Date: 20180511
  Receipt Date: 20180511
  Transmission Date: 20180711
  Serious: Yes (Other)
  Sender: FDA-Public Use
  Company Number: US-BEH-2018090476

PATIENT
  Sex: Female

DRUGS (1)
  1. PRIVIGEN [Suspect]
     Active Substance: HUMAN IMMUNOGLOBULIN G
     Indication: PRODUCT USED FOR UNKNOWN INDICATION
     Route: 065

REACTIONS (8)
  - Neoplasm malignant [Unknown]
  - Fluid retention [Unknown]
  - Blood pressure increased [Unknown]
  - Headache [Unknown]
  - Blood viscosity abnormal [Unknown]
  - Fatigue [Unknown]
  - Lymphoma [Unknown]
  - Leukaemia [Unknown]
